FAERS Safety Report 23098824 (Version 1)
Quarter: 2023Q4

REPORT INFORMATION
  Report Type: Spontaneous
  Country: PK (occurrence: PK)
  Receive Date: 20231024
  Receipt Date: 20231024
  Transmission Date: 20240110
  Serious: Yes (Other)
  Sender: FDA-Public Use
  Company Number: PK-PFIZER INC-2020287809

PATIENT
  Age: 36 Year
  Sex: Female

DRUGS (15)
  1. ENBREL [Suspect]
     Active Substance: ETANERCEPT
     Indication: Rheumatoid arthritis
     Dosage: 50 MG, WEEKLY
     Route: 058
     Dates: start: 2014, end: 202107
  2. ENBREL [Suspect]
     Active Substance: ETANERCEPT
     Dosage: 50 MG (EVERY 10TH DAY)
     Route: 058
     Dates: start: 20220328
  3. HYDROXYCHLOROQUINE SULFATE [Concomitant]
     Active Substance: HYDROXYCHLOROQUINE SULFATE
     Dosage: 400 MG, DAILY (1+0+1+0, AFTER MEAL)
     Route: 065
  4. HYDROXYCHLOROQUINE SULFATE [Concomitant]
     Active Substance: HYDROXYCHLOROQUINE SULFATE
     Dosage: 200 MG, 1X/DAY
     Route: 065
  5. HYDROXYCHLOROQUINE SULFATE [Concomitant]
     Active Substance: HYDROXYCHLOROQUINE SULFATE
     Dosage: 400 MG, DAILY (1+0+1+0, AFTER MEAL), CONTINUE/1+1 IN MORNING AND EVENING
     Dates: start: 2013
  6. FOLIC ACID [Concomitant]
     Active Substance: FOLIC ACID
     Dosage: 1 DF, 1X/DAY AFTER MEAL
  7. CAC [Concomitant]
     Dosage: 1 DF, 1X/DAY AFTER MEAL
  8. PANADOL [Concomitant]
     Active Substance: ACETAMINOPHEN
     Indication: Pain
     Dosage: 2 DF, 1X/DAY AFTER MEAL, WHEN REQUIRED FOR PAIN
  9. Sunny d [Concomitant]
     Dosage: 1 DF, 1X/DAY
  10. Sunny d [Concomitant]
     Dosage: 1 DF (1X CAPSULES, ONCE IN TWO MONTHS CONTINUE)
  11. DICLOFENAC SODIUM [Concomitant]
     Active Substance: DICLOFENAC\DICLOFENAC SODIUM
     Dosage: UNK, 3X/DAY CONTINUE
  12. DELTACORTRIL [Concomitant]
     Active Substance: PREDNISOLONE
     Dosage: 5 MG, DAILY, AFTER MEAL,1 TAB IN MORNING, AFTER MEAL, CONTINUE/TAPER VERY SLOWY.
  13. SULFASALAZINE [Concomitant]
     Active Substance: SULFASALAZINE
     Dosage: 1+1 IN MORNING AND EVENING
     Dates: start: 202205
  14. NUBEROL [Concomitant]
     Indication: Pain
     Dosage: 1 TAB EVENING AFTER MEAL CONTINUE
  15. Phlogin [Concomitant]
     Dosage: 1 CAP IN MORNING AFTER MEAL
     Route: 065

REACTIONS (16)
  - Typhoid fever [Unknown]
  - Arthralgia [Unknown]
  - Joint swelling [Unknown]
  - Musculoskeletal stiffness [Unknown]
  - Headache [Unknown]
  - Hypertension [Unknown]
  - Blood pressure fluctuation [Unknown]
  - Obesity [Unknown]
  - Dyslipidaemia [Unknown]
  - Creatinine urine increased [Unknown]
  - Fall [Unknown]
  - Neck pain [Unknown]
  - Oedema peripheral [Unknown]
  - Osteoarthritis [Unknown]
  - Bone lesion [Unknown]
  - Off label use [Unknown]

NARRATIVE: CASE EVENT DATE: 20200601
